FAERS Safety Report 13867392 (Version 1)
Quarter: 2017Q3

REPORT INFORMATION
  Report Type: Spontaneous
  Country: US (occurrence: None)
  Receive Date: 20170814
  Receipt Date: 20170814
  Transmission Date: 20171127
  Serious: Yes (Hospitalization)
  Sender: FDA-Public Use
  Company Number: None

PATIENT
  Age: 58 Year
  Sex: Female

DRUGS (1)
  1. ENOXAPARIN 40MG [Suspect]
     Active Substance: ENOXAPARIN
     Indication: DRUG THERAPY
     Dosage: 40MG Q15DAYS SQ
     Route: 058
     Dates: start: 201708

REACTIONS (1)
  - Hospitalisation [None]

NARRATIVE: CASE EVENT DATE: 201708
